FAERS Safety Report 7389643-3 (Version None)
Quarter: 2011Q2

REPORT INFORMATION
  Report Type: 
  Country: None (occurrence: None)
  Receive Date: 20110401
  Receipt Date: 20110323
  Transmission Date: 20111010
  Serious: Yes (Other)
  Sender: FDA-Public Use
  Company Number: BR-SANOFI-AVENTIS-2011SA018197

PATIENT
  Age: 52 Year
  Sex: Female
  Weight: 92 kg

DRUGS (6)
  1. LANTUS [Suspect]
     Route: 058
  2. OPTIPEN [Suspect]
  3. APIDRA SOLOSTAR [Concomitant]
     Dates: start: 20100101
  4. SOLOSTAR [Concomitant]
  5. DICETEL [Concomitant]
     Indication: DYSENTERY
     Route: 048
  6. CENTRUM [Concomitant]
     Route: 048

REACTIONS (2)
  - BLOOD GLUCOSE INCREASED [None]
  - RENAL IMPAIRMENT [None]
